FAERS Safety Report 25323017 (Version 1)
Quarter: 2025Q2

REPORT INFORMATION
  Report Type: Spontaneous
  Country: CN (occurrence: CN)
  Receive Date: 20250516
  Receipt Date: 20250516
  Transmission Date: 20250717
  Serious: Yes (Hospitalization)
  Sender: COHERUS
  Company Number: CN-SHANGHAI JUNSHI BIOSCIENCES CO., LTD.-CN2025014111

PATIENT

DRUGS (3)
  1. TORIPALIMAB [Suspect]
     Active Substance: TORIPALIMAB
     Indication: Lung squamous cell carcinoma recurrent
     Route: 041
     Dates: start: 20250211, end: 20250211
  2. LOBAPLATIN [Suspect]
     Active Substance: LOBAPLATIN
     Indication: Lung squamous cell carcinoma recurrent
     Route: 041
     Dates: start: 20250211, end: 20250211
  3. PACLITAXEL [Suspect]
     Active Substance: PACLITAXEL
     Indication: Lung squamous cell carcinoma recurrent
     Route: 041
     Dates: start: 20250211, end: 20250211

REACTIONS (1)
  - Myelosuppression [Recovering/Resolving]

NARRATIVE: CASE EVENT DATE: 20250209
